FAERS Safety Report 7129815-6 (Version None)
Quarter: 2010Q4

REPORT INFORMATION
  Report Type: 
  Country: None (occurrence: None)
  Receive Date: 20101130
  Receipt Date: 20100824
  Transmission Date: 20110411
  Serious: No
  Sender: FDA-Public Use
  Company Number: US-AMGEN-KDL433642

PATIENT

DRUGS (1)
  1. NPLATE [Suspect]
     Indication: IDIOPATHIC THROMBOCYTOPENIC PURPURA
     Dosage: UNK UNK, UNK
     Dates: start: 20100820

REACTIONS (2)
  - DYSPEPSIA [None]
  - VOMITING [None]
